FAERS Safety Report 5000875-1 (Version None)
Quarter: 2006Q2

REPORT INFORMATION
  Report Type: 
  Country: None (occurrence: None)
  Receive Date: 20060512
  Receipt Date: 20050418
  Transmission Date: 20061013
  Serious: No
  Sender: FDA-Public Use
  Company Number: US-GLAXOSMITHKLINE-A0554530A

PATIENT
  Age: 42 Year
  Sex: Female

DRUGS (3)
  1. RELAFEN [Suspect]
     Indication: FIBROMYALGIA
     Dosage: 750MG TWICE PER DAY
     Route: 048
  2. SYNTHROID [Suspect]
     Indication: DRUG USE FOR UNKNOWN INDICATION
     Route: 065
  3. MULTIPLE MEDICATIONS [Concomitant]
     Route: 065

REACTIONS (1)
  - ASTHMA [None]
